FAERS Safety Report 24290763 (Version 1)
Quarter: 2024Q3

REPORT INFORMATION
  Report Type: Spontaneous
  Country: GB (occurrence: GB)
  Receive Date: 20240906
  Receipt Date: 20240906
  Transmission Date: 20241017
  Serious: Yes (Other)
  Sender: CURIUM PHARMACEUTICALS
  Company Number: None

PATIENT
  Age: 40 Year
  Sex: Male
  Weight: 85 kg

DRUGS (2)
  1. TECHNESCAN HDP [Suspect]
     Active Substance: TECHNETIUM TC-99M OXIDRONATE
     Indication: Bone scan
     Route: 042
     Dates: start: 20240816, end: 20240816
  2. TECHNETIUM TC-99M SODIUM PERTECHNETATE [Suspect]
     Active Substance: TECHNETIUM TC-99M SODIUM PERTECHNETATE
     Indication: Bone scan
     Route: 042
     Dates: start: 20240816, end: 20240816

REACTIONS (4)
  - Fatigue [Recovered/Resolved]
  - Somnolence [Recovered/Resolved]
  - Brain fog [Recovered/Resolved]
  - Hypersensitivity [Recovered/Resolved]

NARRATIVE: CASE EVENT DATE: 20240816
